FAERS Safety Report 18056558 (Version 1)
Quarter: 2020Q3

REPORT INFORMATION
  Report Type: Spontaneous
  Country: US (occurrence: US)
  Receive Date: 20200722
  Receipt Date: 20200722
  Transmission Date: 20201103
  Serious: No
  Sender: FDA-Public Use
  Company Number: US-LNK INTERNATIONAL, INC.-2087624

PATIENT
  Sex: Female

DRUGS (2)
  1. LEVOTHYROXINE. [Concomitant]
     Active Substance: LEVOTHYROXINE
  2. IBUPROFEN. [Suspect]
     Active Substance: IBUPROFEN

REACTIONS (4)
  - Hyperhidrosis [None]
  - Asthenia [None]
  - Flushing [None]
  - Palpitations [None]
